FAERS Safety Report 5218979-7 (Version None)
Quarter: 2007Q1

REPORT INFORMATION
  Report Type: 
  Country: None (occurrence: None)
  Receive Date: 20070125
  Receipt Date: 20070116
  Transmission Date: 20070707
  Serious: Yes (Other)
  Sender: FDA-Public Use
  Company Number: PHBS2006JP19375

PATIENT
  Age: 56 Year
  Sex: Male
  Weight: 81 kg

DRUGS (6)
  1. LAMISIL [Suspect]
     Indication: NAIL TINEA
     Dosage: 125 MG/D
     Route: 048
     Dates: start: 20061106, end: 20061206
  2. NORVASC [Concomitant]
     Indication: HYPERTENSION
     Dosage: 2.5 MG/D
     Route: 048
     Dates: start: 19970307
  3. BLOPRESS [Concomitant]
     Indication: HYPERTENSION
     Dosage: 4 MG/D
     Route: 048
     Dates: start: 19970307
  4. PANTOSIN [Concomitant]
     Indication: HYPERLIPIDAEMIA
     Dosage: 400 MG/D
     Route: 048
     Dates: start: 19980227
  5. JUVELA [Concomitant]
     Route: 048
  6. GASMOTIN [Concomitant]

REACTIONS (11)
  - ALANINE AMINOTRANSFERASE INCREASED [None]
  - ANOREXIA [None]
  - ASPARTATE AMINOTRANSFERASE INCREASED [None]
  - BLOOD ALKALINE PHOSPHATASE INCREASED [None]
  - BLOOD LACTATE DEHYDROGENASE INCREASED [None]
  - C-REACTIVE PROTEIN INCREASED [None]
  - GAMMA-GLUTAMYLTRANSFERASE INCREASED [None]
  - HEADACHE [None]
  - LIVER DISORDER [None]
  - MALAISE [None]
  - PYREXIA [None]
